FAERS Safety Report 13739199 (Version 1)
Quarter: 2017Q3

REPORT INFORMATION
  Report Type: Spontaneous
  Country: US (occurrence: US)
  Receive Date: 20170710
  Receipt Date: 20170710
  Transmission Date: 20171127
  Serious: Yes (Other)
  Sender: FDA-Public Use
  Company Number: US-SAOL THERAPEUTICS-2017SAO00876

PATIENT
  Age: 47 Year
  Sex: Female

DRUGS (4)
  1. LIORESAL [Suspect]
     Active Substance: BACLOFEN
     Dosage: 3.27 ?G, \DAY
  2. BACLOFEN. [Suspect]
     Active Substance: BACLOFEN
     Dosage: UNK
     Route: 048
     Dates: end: 201705
  3. LIORESAL [Suspect]
     Active Substance: BACLOFEN
     Indication: MUSCLE SPASTICITY
     Dosage: 35 ?G, \DAY
     Route: 037
  4. BACLOFEN. [Suspect]
     Active Substance: BACLOFEN
     Dosage: UNK
     Route: 048
     Dates: start: 201705

REACTIONS (5)
  - Implant site haematoma [Recovered/Resolved]
  - Back pain [Unknown]
  - Dizziness [Unknown]
  - Implant site irritation [Unknown]
  - Device malfunction [Recovered/Resolved]

NARRATIVE: CASE EVENT DATE: 20170509
